FAERS Safety Report 4459199-3 (Version None)
Quarter: 2004Q3

REPORT INFORMATION
  Report Type: 
  Country: None (occurrence: None)
  Receive Date: 20040927
  Receipt Date: 20040720
  Transmission Date: 20050211
  Serious: Yes (Death, Hospitalization, Other)
  Sender: FDA-Public Use
  Company Number: JP-BRISTOL-MYERS SQUIBB COMPANY-12646725

PATIENT
  Age: 66 Year
  Sex: Male

DRUGS (10)
  1. TAXOL [Suspect]
     Indication: GASTRIC CANCER
     Dosage: THERAPY DATES: 30-APR-2004 TO 08-JUL-2004 @ VARYING DOSES
     Route: 041
     Dates: start: 20040708, end: 20040708
  2. DECADRON [Concomitant]
     Route: 042
  3. GASTER [Concomitant]
  4. MS CONTIN [Concomitant]
     Route: 048
  5. MAGNESIUM OXIDE [Concomitant]
     Route: 048
  6. LASIX [Concomitant]
     Route: 048
  7. LENDORMIN [Concomitant]
     Route: 048
  8. KYTRIL [Concomitant]
     Route: 041
     Dates: start: 20040430, end: 20040708
  9. POLARAMINE [Concomitant]
     Route: 041
     Dates: start: 20040430, end: 20040708
  10. DECADRON [Concomitant]
     Route: 041
     Dates: start: 20040430, end: 20040708

REACTIONS (7)
  - BLOOD ALKALINE PHOSPHATASE INCREASED [None]
  - GASTRIC CANCER [None]
  - HAEMOGLOBIN DECREASED [None]
  - HYPOGLYCAEMIA [None]
  - PLATELET COUNT DECREASED [None]
  - SHOCK HYPOGLYCAEMIC [None]
  - WHITE BLOOD CELL COUNT DECREASED [None]
